FAERS Safety Report 15322734 (Version 3)
Quarter: 2018Q4

REPORT INFORMATION
  Report Type: Report from Study
  Country: US (occurrence: US)
  Receive Date: 20180827
  Receipt Date: 20181009
  Transmission Date: 20190204
  Serious: Yes (Hospitalization, Other)
  Sender: FDA-Public Use
  Company Number: US-GILEAD-2018-0358980

PATIENT
  Age: 71 Year
  Sex: Male

DRUGS (1)
  1. AMBRISENTAN [Suspect]
     Active Substance: AMBRISENTAN
     Indication: PULMONARY ARTERIAL HYPERTENSION
     Dosage: 5 MG, QD
     Route: 065
     Dates: start: 20160225, end: 20180906

REACTIONS (4)
  - Haemoglobin decreased [Unknown]
  - Ulcer haemorrhage [Unknown]
  - Cardiac failure [Unknown]
  - Fluid retention [Unknown]

NARRATIVE: CASE EVENT DATE: 20180906
